FAERS Safety Report 7546652 (Version 5)
Quarter: 2019Q1

REPORT INFORMATION
  Report Type: Spontaneous
  Country: US (occurrence: US)
  Receive Date: 20100708
  Receipt Date: 20190313
  Transmission Date: 20190418
  Serious: Yes (Hospitalization, Disabling, Other)
  Sender: FDA-Public Use
  Company Number: US-PFIZER INC-2010019280

PATIENT
  Age: 19 Year
  Sex: Male
  Weight: 139 kg

DRUGS (21)
  1. ZYPREXA [Concomitant]
     Active Substance: OLANZAPINE
     Indication: SEIZURE
     Dosage: 10 MG, 1X/DAY
  2. TRAZODONE [Concomitant]
     Active Substance: TRAZODONE HYDROCHLORIDE
     Indication: INSOMNIA
  3. L-5-HYDROXYTRYPTOPHAN [Concomitant]
     Dosage: 50 MG, 2X/DAY
  4. CHANTIX [Suspect]
     Active Substance: VARENICLINE TARTRATE
     Indication: SMOKING CESSATION THERAPY
     Dosage: UNK
     Dates: start: 20060513
  5. ABILIFY [Concomitant]
     Active Substance: ARIPIPRAZOLE
     Indication: MANIA
     Dosage: 10 MG, 2X/DAY
  6. CHANTIX [Suspect]
     Active Substance: VARENICLINE TARTRATE
     Dosage: UNK
     Dates: start: 200611, end: 200805
  7. DEPAKOTE [Concomitant]
     Active Substance: DIVALPROEX SODIUM
     Indication: ANXIETY
     Dosage: 500 MG, 4X/DAY
  8. THORAZINE [Concomitant]
     Active Substance: CHLORPROMAZINE
     Indication: DELUSION
     Dosage: UNK
  9. TRAZODONE [Concomitant]
     Active Substance: TRAZODONE HYDROCHLORIDE
     Indication: SLEEP DISORDER
     Dosage: UNK
     Dates: start: 2006, end: 2008
  10. INVEGA SUSTENNA [Concomitant]
     Active Substance: PALIPERIDONE PALMITATE
     Indication: LIBIDO INCREASED
     Dosage: 150 MG, 4 TIMES A MONTH
     Route: 030
  11. PROZAC [Concomitant]
     Active Substance: FLUOXETINE HYDROCHLORIDE
     Indication: EUPHORIC MOOD
     Dosage: 25 MG, 2X/DAY
  12. VISTARIL [Concomitant]
     Active Substance: HYDROXYZINE PAMOATE
     Indication: NARCOLEPSY
     Dosage: UNK
  13. CHANTIX [Suspect]
     Active Substance: VARENICLINE TARTRATE
     Dosage: UNK
     Dates: start: 20171116
  14. HALOPERIDOL. [Concomitant]
     Active Substance: HALOPERIDOL
     Indication: INJURY
     Dosage: 10 MG, 2X/DAY
  15. ZIPRASIDONE. [Concomitant]
     Active Substance: ZIPRASIDONE
     Indication: SCHIZOPHRENIA
     Dosage: UNK
  16. TRICOR [Concomitant]
     Active Substance: FENOFIBRATE
     Indication: BLOOD CHOLESTEROL INCREASED
     Dosage: 30 MG, 3X/DAY
     Dates: start: 2006, end: 2008
  17. LITHIUM. [Concomitant]
     Active Substance: LITHIUM
     Dosage: 20 MG, 3X/DAY
  18. VITAMINS [Concomitant]
     Active Substance: VITAMINS
     Dosage: UNK
  19. CHANTIX [Suspect]
     Active Substance: VARENICLINE TARTRATE
     Dosage: UNK
     Route: 048
     Dates: start: 20070105, end: 200709
  20. GEODON [Concomitant]
     Active Substance: ZIPRASIDONE HYDROCHLORIDE\ZIPRASIDONE MESYLATE
     Indication: DISSOCIATIVE IDENTITY DISORDER
     Dosage: 50 MG, 2X/DAY
  21. VISTARIL [Concomitant]
     Active Substance: HYDROXYZINE PAMOATE
     Indication: DAYDREAMING

REACTIONS (31)
  - Dry mouth [Not Recovered/Not Resolved]
  - Thinking abnormal [Not Recovered/Not Resolved]
  - Loss of consciousness [Unknown]
  - Mental disorder [Unknown]
  - Paranoia [Unknown]
  - Intentional overdose [Recovered/Resolved]
  - Seizure [Not Recovered/Not Resolved]
  - Muscle spasms [Unknown]
  - Post-traumatic stress disorder [Unknown]
  - Psychotic disorder [Recovered/Resolved]
  - Depression [Not Recovered/Not Resolved]
  - Amnesia [Not Recovered/Not Resolved]
  - Anxiety [Not Recovered/Not Resolved]
  - Dissociative disorder [Not Recovered/Not Resolved]
  - Abnormal dreams [Unknown]
  - Abulia [Unknown]
  - Nausea [Not Recovered/Not Resolved]
  - Poverty of speech [Unknown]
  - Hallucination [Unknown]
  - Diabetic complication [Unknown]
  - Nightmare [Unknown]
  - Insomnia [Unknown]
  - Aggression [Unknown]
  - Anger [Unknown]
  - Anhedonia [Not Recovered/Not Resolved]
  - Suicide attempt [Recovered/Resolved]
  - Restlessness [Unknown]
  - Bipolar disorder [Not Recovered/Not Resolved]
  - Delusion [Unknown]
  - Chest pain [Unknown]
  - Weight decreased [Not Recovered/Not Resolved]

NARRATIVE: CASE EVENT DATE: 2007
